FAERS Safety Report 5569686-2 (Version None)
Quarter: 2007Q4

REPORT INFORMATION
  Report Type: 
  Country: None (occurrence: None)
  Receive Date: 20071220
  Receipt Date: 20071218
  Transmission Date: 20080405
  Serious: Yes (Hospitalization)
  Sender: FDA-Public Use
  Company Number: D0055558A

PATIENT
  Age: 55 Year
  Sex: Female

DRUGS (9)
  1. VIANI [Suspect]
     Indication: ASTHMA
     Dosage: 1BLS TWICE PER DAY
     Route: 055
     Dates: start: 20060710
  2. HALOPERIDOL DECANOATE [Suspect]
     Dosage: 150MG PER DAY
     Route: 030
  3. BERODUAL [Suspect]
     Dosage: 1BLS FOUR TIMES PER DAY
     Route: 065
  4. DIAZEPAM [Concomitant]
     Dosage: 15MG PER DAY
     Route: 048
  5. TAVOR [Concomitant]
     Dosage: 1.5MG PER DAY
     Route: 048
     Dates: start: 20060615, end: 20060716
  6. L-THYROXIN [Concomitant]
     Dosage: 50MCG PER DAY
     Route: 048
  7. DILATREND [Concomitant]
     Indication: HYPERTENSION
     Dosage: 12.5MG PER DAY
     Route: 048
  8. TOREM [Concomitant]
     Indication: DIURETIC THERAPY
     Dosage: 5MG PER DAY
     Route: 048
     Dates: start: 20070630, end: 20070713
  9. ENALAPRIL [Concomitant]
     Indication: HYPERTENSION
     Dosage: 10MG PER DAY
     Route: 048

REACTIONS (10)
  - ARRHYTHMIA [None]
  - CATHETER RELATED INFECTION [None]
  - CYANOSIS [None]
  - DRUG INTERACTION [None]
  - GENERAL PHYSICAL HEALTH DETERIORATION [None]
  - HYPERTENSION [None]
  - PNEUMONIA [None]
  - PYREXIA [None]
  - SOMNOLENCE [None]
  - VENTRICULAR TACHYCARDIA [None]
